FAERS Safety Report 5642861-4 (Version None)
Quarter: 2008Q1

REPORT INFORMATION
  Report Type: 
  Country: None (occurrence: None)
  Receive Date: 20080228
  Receipt Date: 20080214
  Transmission Date: 20080703
  Serious: Yes (Hospitalization)
  Sender: FDA-Public Use
  Company Number: GB-RANBAXY-2008RR-13120

PATIENT

DRUGS (12)
  1. ACYCLOVIR [Suspect]
     Indication: CHEMOTHERAPY
     Dosage: UNK
     Dates: start: 20070622, end: 20071116
  2. ALENDRONIC ACID 10MG TABLETS [Suspect]
     Dosage: UNK
     Dates: start: 20071201
  3. ALLOPURINOL TABLETS BP 100MG [Suspect]
  4. CIPROFLOXACIN [Suspect]
     Indication: CHEMOTHERAPY
     Dosage: UNK
     Dates: start: 20070622, end: 20071116
  5. COTRIM [Suspect]
  6. CYCLOPHOSPHAMIDE [Suspect]
     Indication: CHEMOTHERAPY
     Dosage: UNK
     Dates: start: 20070622, end: 20071116
  7. FLUCONAZOLE 100MG CAPSULES [Suspect]
     Indication: CHEMOTHERAPY
     Dosage: UNK
     Dates: start: 20070622, end: 20071116
  8. LANSOPRAZOLE [Suspect]
  9. ONDANSETRON FILM COATED TABLET [Suspect]
  10. PREDNISOLONE RPG 20MG COMPRIME EFFERVESCENT SECABLE [Suspect]
     Indication: CHEMOTHERAPY
     Dosage: UNK
     Dates: start: 20070622, end: 20071116
  11. RITUXIMAB [Suspect]
     Indication: CHEMOTHERAPY
     Dosage: UNK
     Dates: start: 20070622, end: 20071116
  12. VINCRISTINE [Suspect]
     Indication: CHEMOTHERAPY
     Dosage: UNK
     Dates: start: 20070622, end: 20071116

REACTIONS (1)
  - TOXIC SKIN ERUPTION [None]
